FAERS Safety Report 15214027 (Version 1)
Quarter: 2018Q3

REPORT INFORMATION
  Report Type: Spontaneous
  Country: US (occurrence: US)
  Receive Date: 20180730
  Receipt Date: 20180730
  Transmission Date: 20181010
  Serious: Yes (Other)
  Sender: FDA-Public Use
  Company Number: US-SA-2018SA200694

PATIENT
  Age: 42 Year
  Sex: Female
  Weight: 67 kg

DRUGS (5)
  1. TAXOTERE [Suspect]
     Active Substance: DOCETAXEL
     Indication: BREAST CANCER FEMALE
     Dosage: 178 MG, Q3W
     Route: 042
     Dates: start: 20030910, end: 20030910
  2. HERCEPTIN [Concomitant]
     Active Substance: TRASTUZUMAB
  3. TAXOTERE [Suspect]
     Active Substance: DOCETAXEL
     Dosage: 178 MG, Q3W
     Route: 042
     Dates: start: 20031112, end: 20031112
  4. NEOSAR [Concomitant]
     Active Substance: CYCLOPHOSPHAMIDE
  5. DOXORUBICIN [Concomitant]
     Active Substance: DOXORUBICIN

REACTIONS (2)
  - Psychological trauma [Unknown]
  - Alopecia [Not Recovered/Not Resolved]

NARRATIVE: CASE EVENT DATE: 200405
